FAERS Safety Report 5423281-4 (Version None)
Quarter: 2007Q3

REPORT INFORMATION
  Report Type: 
  Country: None (occurrence: None)
  Receive Date: 20070823
  Receipt Date: 20070816
  Transmission Date: 20080115
  Serious: Yes (Hospitalization)
  Sender: FDA-Public Use
  Company Number: US-RB-007730-07

PATIENT
  Sex: Female
  Weight: 3.15 kg

DRUGS (2)
  1. SUBUTEX [Suspect]
     Route: 064
     Dates: start: 20060925, end: 20070217
  2. COCAINE [Concomitant]

REACTIONS (3)
  - DRUG EXPOSURE DURING PREGNANCY [None]
  - DRUG WITHDRAWAL SYNDROME NEONATAL [None]
  - VOMITING [None]
